FAERS Safety Report 11942097 (Version 1)
Quarter: 2016Q1

REPORT INFORMATION
  Report Type: Spontaneous
  Country: US (occurrence: US)
  Receive Date: 20160124
  Receipt Date: 20160124
  Transmission Date: 20160526
  Serious: Yes (Hospitalization)
  Sender: FDA-Public Use
  Company Number: US-RARE DISEASE THERAPEUTICS, INC.-1046843

PATIENT
  Age: 12 Year
  Sex: Female

DRUGS (14)
  1. METHOTREXATE SODIUM. [Concomitant]
     Active Substance: METHOTREXATE SODIUM
  2. MIRALAX [Concomitant]
     Active Substance: POLYETHYLENE GLYCOL 3350
  3. VORICONAZOLE. [Concomitant]
     Active Substance: VORICONAZOLE
  4. AMITRIPTYLINE HYDROCHLORIDE. [Concomitant]
     Active Substance: AMITRIPTYLINE HYDROCHLORIDE
  5. LORAZEPAM. [Concomitant]
     Active Substance: LORAZEPAM
  6. SEVELAMER CARBONATE. [Concomitant]
     Active Substance: SEVELAMER CARBONATE
  7. ACIDOPHILUS [Concomitant]
     Active Substance: LACTOBACILLUS ACIDOPHILUS
  8. PURIXAN [Suspect]
     Active Substance: MERCAPTOPURINE
     Indication: ACUTE LYMPHOCYTIC LEUKAEMIA
     Dates: start: 20150919
  9. LEVOCARNITINE. [Concomitant]
     Active Substance: LEVOCARNITINE
  10. OLANZAPINE. [Concomitant]
     Active Substance: OLANZAPINE
  11. CARVEDILOL. [Concomitant]
     Active Substance: CARVEDILOL
  12. ESCRITALOPRAM [Concomitant]
  13. OMEPRAZOLE. [Concomitant]
     Active Substance: OMEPRAZOLE
  14. OXYCODONE [Concomitant]
     Active Substance: OXYCODONE

REACTIONS (1)
  - Bacteraemia [Recovered/Resolved]

NARRATIVE: CASE EVENT DATE: 20151218
